FAERS Safety Report 5156771-2 (Version None)
Quarter: 2006Q4

REPORT INFORMATION
  Report Type: 
  Country: None (occurrence: None)
  Receive Date: 20061115
  Receipt Date: 20061031
  Transmission Date: 20070319
  Serious: Yes (Hospitalization)
  Sender: FDA-Public Use
  Company Number: S06-PRT-04356-01

PATIENT
  Age: 50 Year
  Sex: Female

DRUGS (3)
  1. CIPRALEX (ESCITALOPRAM) [Suspect]
  2. TRITICUM (TRAZODONE HYDROCHLORIDE) [Suspect]
  3. CIPRALEX (ESCITALOPRAM) [Concomitant]

REACTIONS (1)
  - HEPATITIS A [None]
